FAERS Safety Report 9119072 (Version 2)
Quarter: 2013Q2

REPORT INFORMATION
  Report Type: Spontaneous
  Country: US (occurrence: US)
  Receive Date: 20130226
  Receipt Date: 20130402
  Transmission Date: 20140414
  Serious: Yes (Hospitalization, Other)
  Sender: FDA-Public Use
  Company Number: US-PFIZER INC-2013063814

PATIENT
  Age: 51 Year
  Sex: Male

DRUGS (2)
  1. BOSULIF [Suspect]
     Indication: CHRONIC MYELOID LEUKAEMIA
     Dosage: 500 MG, 1X/DAY
     Route: 048
     Dates: start: 20130121
  2. BOSULIF [Suspect]
     Indication: CHRONIC MYELOID LEUKAEMIA
     Dosage: 500 MG, 1X/DAY
     Route: 048
     Dates: start: 20130122, end: 20130320

REACTIONS (7)
  - Diarrhoea [Unknown]
  - Dehydration [Unknown]
  - Headache [Unknown]
  - Nausea [Unknown]
  - Fluid retention [Unknown]
  - Blood glucose increased [Unknown]
  - Liver disorder [Unknown]
